FAERS Safety Report 8867070 (Version 1)
Quarter: 2012Q4

REPORT INFORMATION
  Report Type: 
  Country: US (occurrence: US)
  Receive Date: 20121025
  Receipt Date: 20121025
  Transmission Date: 20130627
  Serious: No
  Sender: FDA-Public Use
  Company Number: US-AMGEN-USASP2012014608

PATIENT
  Sex: Female

DRUGS (9)
  1. ENBREL [Suspect]
     Indication: PRODUCT USED FOR UNKNOWN INDICATION
     Dosage: 25 mg, 2 times/wk
  2. METHOTREXATE [Concomitant]
     Dosage: 2.5 mg, UNK
  3. NAPROXEN [Concomitant]
     Dosage: 500 mg, UNK
  4. FOLIC ACID [Concomitant]
     Dosage: 1 mg, UNK
  5. CALCIUM CARBONATE [Concomitant]
     Dosage: 650 mg, UNK
  6. LEUCOVORIN CA [Concomitant]
     Dosage: 5 mg, UNK
  7. METOPROLOL [Concomitant]
     Dosage: 50 mg, UNK
  8. HYDROCHLOROTH [Concomitant]
     Dosage: 12.5 mg, UNK
  9. FISH OIL [Concomitant]
     Dosage: 1000 mg, UNK

REACTIONS (1)
  - Ear discomfort [Unknown]
